FAERS Safety Report 24697059 (Version 1)
Quarter: 2024Q4

REPORT INFORMATION
  Report Type: Spontaneous
  Country: CA (occurrence: CA)
  Receive Date: 20241204
  Receipt Date: 20241204
  Transmission Date: 20250115
  Serious: Yes (Hospitalization, Other)
  Sender: SANDOZ
  Company Number: CA-SANDOZ-SDZ2024CA098284

PATIENT
  Age: 59 Year
  Sex: Female

DRUGS (83)
  1. BISOPROLOL [Suspect]
     Active Substance: BISOPROLOL
     Indication: Tachycardia
     Dosage: 2.5 MG, QD
     Route: 065
  2. BISOPROLOL [Suspect]
     Active Substance: BISOPROLOL
     Indication: Blood uric acid increased
  3. BISOPROLOL [Suspect]
     Active Substance: BISOPROLOL
     Indication: Rheumatoid arthritis
  4. DULOXETINE HYDROCHLORIDE [Suspect]
     Active Substance: DULOXETINE HYDROCHLORIDE
     Indication: Product used for unknown indication
     Dosage: UNK
     Route: 048
  5. ERELZI [Suspect]
     Active Substance: ETANERCEPT-SZZS
     Indication: Rheumatoid arthritis
     Dosage: 50 MG, QW
     Route: 058
  6. ERELZI [Suspect]
     Active Substance: ETANERCEPT-SZZS
     Indication: Tachycardia
     Dosage: 50 MG, QW
     Route: 058
  7. ERELZI [Suspect]
     Active Substance: ETANERCEPT-SZZS
     Indication: Blood uric acid increased
     Dosage: UNK, QW
     Route: 058
  8. ERELZI [Suspect]
     Active Substance: ETANERCEPT-SZZS
     Dosage: UNK
     Route: 058
  9. FOLIC ACID [Suspect]
     Active Substance: FOLIC ACID
     Indication: Tachycardia
     Dosage: UNK
     Route: 065
  10. FOLIC ACID [Suspect]
     Active Substance: FOLIC ACID
     Indication: Blood uric acid increased
  11. FOLIC ACID [Suspect]
     Active Substance: FOLIC ACID
     Indication: Rheumatoid arthritis
  12. INDOMETHACIN [Suspect]
     Active Substance: INDOMETHACIN
     Indication: Blood uric acid increased
     Dosage: 100 MG, QD
     Route: 065
  13. INDOMETHACIN [Suspect]
     Active Substance: INDOMETHACIN
     Indication: Rheumatoid arthritis
     Dosage: UNK
     Route: 048
  14. INDOMETHACIN [Suspect]
     Active Substance: INDOMETHACIN
     Indication: Tachycardia
     Dosage: UNK
     Route: 048
  15. JARDIANCE [Suspect]
     Active Substance: EMPAGLIFLOZIN
     Indication: Tachycardia
     Dosage: 10 MG, QD
     Route: 065
  16. JARDIANCE [Suspect]
     Active Substance: EMPAGLIFLOZIN
     Indication: Blood uric acid increased
  17. JARDIANCE [Suspect]
     Active Substance: EMPAGLIFLOZIN
     Indication: Rheumatoid arthritis
  18. LEFLUNOMIDE [Suspect]
     Active Substance: LEFLUNOMIDE
     Indication: Rheumatoid arthritis
     Dosage: 10 MG, QD
     Route: 065
  19. LEFLUNOMIDE [Suspect]
     Active Substance: LEFLUNOMIDE
     Indication: Tachycardia
     Dosage: 20 MG, QD
     Route: 048
  20. LEFLUNOMIDE [Suspect]
     Active Substance: LEFLUNOMIDE
     Indication: Blood uric acid increased
  21. METFORMIN [Suspect]
     Active Substance: METFORMIN HYDROCHLORIDE
     Indication: Tachycardia
     Dosage: 500 MG, Q12H
     Route: 065
  22. METFORMIN [Suspect]
     Active Substance: METFORMIN HYDROCHLORIDE
     Indication: Blood uric acid increased
  23. METFORMIN [Suspect]
     Active Substance: METFORMIN HYDROCHLORIDE
     Indication: Rheumatoid arthritis
  24. DULOXETINE [Suspect]
     Active Substance: DULOXETINE
     Indication: Tachycardia
     Dosage: 90 MG, QD
     Route: 065
  25. DULOXETINE [Suspect]
     Active Substance: DULOXETINE
     Indication: Blood uric acid increased
  26. DULOXETINE [Suspect]
     Active Substance: DULOXETINE
     Indication: Rheumatoid arthritis
  27. ALLOPURINOL [Concomitant]
     Active Substance: ALLOPURINOL
     Indication: Tachycardia
     Dosage: 100 MG, QD
     Route: 065
  28. ALLOPURINOL [Concomitant]
     Active Substance: ALLOPURINOL
     Indication: Rheumatoid arthritis
     Dosage: UNK, QD
     Route: 065
  29. ALLOPURINOL [Concomitant]
     Active Substance: ALLOPURINOL
     Indication: Blood uric acid increased
  30. PERINDOPRIL ARGININE [Concomitant]
     Active Substance: PERINDOPRIL ARGININE
     Indication: Tachycardia
     Dosage: UNK/TABLET (ORALLY DISINTEGRATING)
     Route: 048
  31. PERINDOPRIL ARGININE [Concomitant]
     Active Substance: PERINDOPRIL ARGININE
     Indication: Blood uric acid increased
  32. PERINDOPRIL ARGININE [Concomitant]
     Active Substance: PERINDOPRIL ARGININE
     Indication: Rheumatoid arthritis
  33. CELEBREX [Concomitant]
     Active Substance: CELECOXIB
     Indication: Tachycardia
     Dosage: 100 MG, QD
     Route: 048
  34. CELEBREX [Concomitant]
     Active Substance: CELECOXIB
     Indication: Rheumatoid arthritis
     Dosage: 200 MG, QD
     Route: 065
  35. CELEBREX [Concomitant]
     Active Substance: CELECOXIB
     Indication: Blood uric acid increased
  36. CELEBREX [Concomitant]
     Active Substance: CELECOXIB
     Indication: Osteoarthritis
  37. PERINDOPRIL [Concomitant]
     Active Substance: PERINDOPRIL
     Indication: Product used for unknown indication
     Dosage: UNK UNK, QD
     Route: 065
  38. PERINDOPRIL [Concomitant]
     Active Substance: PERINDOPRIL
     Dosage: UNK
     Route: 065
  39. CYANOCOBALAMIN [Concomitant]
     Active Substance: CYANOCOBALAMIN
     Indication: Tachycardia
     Dosage: UNK, QD
     Route: 065
  40. CYANOCOBALAMIN [Concomitant]
     Active Substance: CYANOCOBALAMIN
     Indication: Rheumatoid arthritis
     Dosage: UNK
     Route: 065
  41. CYANOCOBALAMIN [Concomitant]
     Active Substance: CYANOCOBALAMIN
     Indication: Blood uric acid increased
  42. DICLOFENAC [Concomitant]
     Active Substance: DICLOFENAC
     Indication: Tachycardia
     Dosage: UNK
     Route: 048
  43. DICLOFENAC [Concomitant]
     Active Substance: DICLOFENAC
     Indication: Rheumatoid arthritis
     Dosage: UNK
     Route: 061
  44. DICLOFENAC [Concomitant]
     Active Substance: DICLOFENAC
     Indication: Blood uric acid increased
  45. FERROUS GLUCONATE [Concomitant]
     Active Substance: FERROUS GLUCONATE
     Indication: Tachycardia
     Dosage: UNK, Q8H
     Route: 065
  46. FERROUS GLUCONATE [Concomitant]
     Active Substance: FERROUS GLUCONATE
     Indication: Rheumatoid arthritis
     Dosage: UNK
     Route: 065
  47. FERROUS GLUCONATE [Concomitant]
     Active Substance: FERROUS GLUCONATE
     Indication: Blood uric acid increased
  48. IBUPROFEN [Concomitant]
     Active Substance: IBUPROFEN
     Indication: Tachycardia
     Dosage: UNK, QD
     Route: 065
  49. IBUPROFEN [Concomitant]
     Active Substance: IBUPROFEN
     Indication: Blood uric acid increased
  50. IBUPROFEN [Concomitant]
     Active Substance: IBUPROFEN
     Indication: Product used for unknown indication
  51. IBUPROFEN [Concomitant]
     Active Substance: IBUPROFEN
     Indication: Rheumatoid arthritis
  52. LYRICA [Concomitant]
     Active Substance: PREGABALIN
     Indication: Tachycardia
     Dosage: UNK, Q12H
     Route: 065
  53. LYRICA [Concomitant]
     Active Substance: PREGABALIN
     Indication: Blood uric acid increased
  54. LYRICA [Concomitant]
     Active Substance: PREGABALIN
     Indication: Rheumatoid arthritis
  55. METHOTREXATE [Concomitant]
     Active Substance: METHOTREXATE
     Dosage: 20 MG, QW
     Route: 048
  56. METHOTREXATE [Concomitant]
     Active Substance: METHOTREXATE
     Indication: Blood uric acid increased
     Dosage: 20 MG, QW
     Route: 058
  57. METHOTREXATE [Concomitant]
     Active Substance: METHOTREXATE
     Indication: Rheumatoid arthritis
     Dosage: 20 MG, QW
     Route: 065
  58. METHOTREXATE [Concomitant]
     Active Substance: METHOTREXATE
     Indication: Tachycardia
     Dosage: 25 MG, QW
     Route: 058
  59. NAPROXEN [Concomitant]
     Active Substance: NAPROXEN
     Indication: Tachycardia
     Route: 065
  60. NAPROXEN [Concomitant]
     Active Substance: NAPROXEN
     Indication: Tachycardia
     Route: 065
  61. NAPROXEN [Concomitant]
     Active Substance: NAPROXEN
     Indication: Blood uric acid increased
  62. NAPROXEN [Concomitant]
     Active Substance: NAPROXEN
     Indication: Rheumatoid arthritis
  63. PANTOPRAZOLE SODIUM [Concomitant]
     Active Substance: PANTOPRAZOLE SODIUM
     Indication: Tachycardia
     Dosage: UNK, QD
     Route: 065
  64. PANTOPRAZOLE SODIUM [Concomitant]
     Active Substance: PANTOPRAZOLE SODIUM
     Indication: Blood uric acid increased
  65. PANTOPRAZOLE SODIUM [Concomitant]
     Active Substance: PANTOPRAZOLE SODIUM
     Indication: Rheumatoid arthritis
  66. PANTOPRAZOLE SODIUM [Concomitant]
     Active Substance: PANTOPRAZOLE SODIUM
     Dosage: UNK, QD
     Route: 061
  67. PANTOPRAZOLE SODIUM [Concomitant]
     Active Substance: PANTOPRAZOLE SODIUM
     Indication: Product used for unknown indication
     Dosage: UNK, QD
     Route: 065
  68. PRAVACHOL [Concomitant]
     Active Substance: PRAVASTATIN SODIUM
     Indication: Tachycardia
     Dosage: UNK, QD
     Route: 065
  69. PRAVACHOL [Concomitant]
     Active Substance: PRAVASTATIN SODIUM
     Indication: Blood uric acid increased
  70. PRAVACHOL [Concomitant]
     Active Substance: PRAVASTATIN SODIUM
     Indication: Rheumatoid arthritis
  71. SULFASALAZINE [Concomitant]
     Active Substance: SULFASALAZINE
     Indication: Tachycardia
     Route: 065
  72. SULFASALAZINE [Concomitant]
     Active Substance: SULFASALAZINE
     Indication: Tachycardia
     Route: 065
  73. SULFASALAZINE [Concomitant]
     Active Substance: SULFASALAZINE
     Indication: Blood uric acid increased
  74. SULFASALAZINE [Concomitant]
     Active Substance: SULFASALAZINE
     Indication: Rheumatoid arthritis
  75. SYNJARDY [Concomitant]
     Active Substance: EMPAGLIFLOZIN\METFORMIN HYDROCHLORIDE
     Indication: Tachycardia
     Dosage: UNK
     Route: 065
  76. SYNJARDY [Concomitant]
     Active Substance: EMPAGLIFLOZIN\METFORMIN HYDROCHLORIDE
     Indication: Blood uric acid increased
  77. SYNJARDY [Concomitant]
     Active Substance: EMPAGLIFLOZIN\METFORMIN HYDROCHLORIDE
     Indication: Rheumatoid arthritis
  78. TYLENOL [Concomitant]
     Active Substance: ACETAMINOPHEN
     Dosage: TABLET (EXTENDED- RELEASE)
     Route: 065
  79. TYLENOL [Concomitant]
     Active Substance: ACETAMINOPHEN
     Indication: Blood uric acid increased
     Dosage: UNK, QD
     Route: 065
  80. TYLENOL [Concomitant]
     Active Substance: ACETAMINOPHEN
     Dosage: UNK, Q8H
     Route: 065
  81. TYLENOL [Concomitant]
     Active Substance: ACETAMINOPHEN
     Indication: Rheumatoid arthritis
     Dosage: UNK
     Route: 065
  82. TYLENOL [Concomitant]
     Active Substance: ACETAMINOPHEN
     Indication: Tachycardia
     Dosage: UNK
     Route: 065
  83. TYLENOL [Concomitant]
     Active Substance: ACETAMINOPHEN
     Dosage: UNK
     Route: 065

REACTIONS (35)
  - Allergic sinusitis [Unknown]
  - Antinuclear antibody positive [Unknown]
  - Arthropathy [Unknown]
  - Blood iron decreased [Unknown]
  - Blood uric acid increased [Unknown]
  - C-reactive protein increased [Unknown]
  - Condition aggravated [Unknown]
  - Injection site pain [Unknown]
  - Injection site warmth [Unknown]
  - Joint effusion [Unknown]
  - Joint swelling [Unknown]
  - Nephrolithiasis [Unknown]
  - Osteoarthritis [Unknown]
  - Sepsis [Unknown]
  - Vitamin B12 decreased [Unknown]
  - Urinary tract infection [Unknown]
  - Tendonitis [Unknown]
  - Synovitis [Unknown]
  - Synovial disorder [Unknown]
  - Cyst [Unknown]
  - Renal disorder [Unknown]
  - Arthralgia [Unknown]
  - Arthritis [Unknown]
  - Alanine aminotransferase increased [Unknown]
  - Hepatic enzyme increased [Unknown]
  - Oedema [Unknown]
  - Pain [Unknown]
  - Pain in extremity [Unknown]
  - Psoriasis [Unknown]
  - Pyrexia [Unknown]
  - Rash [Unknown]
  - Drug ineffective [Unknown]
  - Incorrect dose administered [Unknown]
  - Wrong technique in device usage process [Unknown]
  - Device issue [Unknown]
